FAERS Safety Report 23696552 (Version 1)
Quarter: 2024Q2

REPORT INFORMATION
  Report Type: Spontaneous
  Country: CN (occurrence: CN)
  Receive Date: 20240402
  Receipt Date: 20240402
  Transmission Date: 20240716
  Serious: Yes (Other)
  Sender: FDA-Public Use
  Company Number: CN-STRIDES ARCOLAB LIMITED-2024SP003713

PATIENT
  Age: 66 Year
  Sex: Female

DRUGS (17)
  1. PREDNISOLONE [Suspect]
     Active Substance: PREDNISOLONE
     Indication: Diffuse large B-cell lymphoma stage IV
     Dosage: UNK (ADMINISTERED UNDER THE R-CHOP REGIMEN)
     Route: 065
  2. PREDNISOLONE [Suspect]
     Active Substance: PREDNISOLONE
     Indication: Immune disorder prophylaxis
     Dosage: UNK
     Route: 065
  3. DOXORUBICIN [Suspect]
     Active Substance: DOXORUBICIN
     Indication: Diffuse large B-cell lymphoma stage IV
     Dosage: UNK (ADMINISTERED UNDER THE R-CHOP REGIMEN)
     Route: 065
  4. RITUXIMAB [Suspect]
     Active Substance: RITUXIMAB
     Indication: Diffuse large B-cell lymphoma stage IV
     Dosage: UNK (ADMINISTERED UNDER THE R-CHOP REGIMEN
     Route: 065
  5. RITUXIMAB [Suspect]
     Active Substance: RITUXIMAB
     Dosage: UNK (ADMINISTERED UNDER THE R-GDP REGIMEN)
     Route: 065
  6. RITUXIMAB [Suspect]
     Active Substance: RITUXIMAB
     Dosage: UNK, CYCLICAL (ADMINISTERED UNDER THE POLA-BR REGIMEN)
     Route: 065
  7. CYCLOPHOSPHAMIDE [Suspect]
     Active Substance: CYCLOPHOSPHAMIDE
     Indication: Diffuse large B-cell lymphoma stage IV
     Dosage: UNK (ADMINISTERED UNDER THE R-CHOP REGIMEN)
     Route: 065
  8. VINCRISTINE [Suspect]
     Active Substance: VINCRISTINE
     Indication: Diffuse large B-cell lymphoma stage IV
     Dosage: UNK (ADMINISTERED UNDER THE R-CHOP REGIMEN)
     Route: 065
  9. GEMCITABINE [Suspect]
     Active Substance: GEMCITABINE
     Indication: Diffuse large B-cell lymphoma stage IV
     Dosage: UNK (ADMINISTERED UNDER THE R-GDP REGIMEN)
     Route: 065
  10. CISPLATIN [Suspect]
     Active Substance: CISPLATIN
     Indication: Diffuse large B-cell lymphoma stage IV
     Dosage: UNK (ADMINISTERED UNDER THE R-GDP REGIMEN)
     Route: 065
  11. DEXAMETHASONE [Suspect]
     Active Substance: DEXAMETHASONE
     Indication: Diffuse large B-cell lymphoma stage IV
     Dosage: UNK (ADMINISTERED UNDER THE R-GDP REGIMEN)
     Route: 065
  12. RUXOLITINIB [Suspect]
     Active Substance: RUXOLITINIB
     Indication: Immune disorder prophylaxis
     Dosage: UNK
     Route: 065
  13. POLATUZUMAB VEDOTIN [Concomitant]
     Active Substance: POLATUZUMAB VEDOTIN
     Indication: Diffuse large B-cell lymphoma stage IV
     Dosage: UNK, CYCLICAL (ADMINISTERED UNDER THE POLA-BR REGIMEN)
     Route: 065
  14. BENDAMUSTINE [Concomitant]
     Active Substance: BENDAMUSTINE
     Indication: Diffuse large B-cell lymphoma stage IV
     Dosage: UNK, CYCLICAL (ADMINISTERED UNDER THE POLA-BR REGIMEN)
     Route: 065
  15. CEFOPERAZONE SODIUM\SULBACTAM SODIUM [Concomitant]
     Active Substance: CEFOPERAZONE SODIUM\SULBACTAM SODIUM
     Indication: Evidence based treatment
     Dosage: UNK
     Route: 065
  16. BIAPENEM [Concomitant]
     Active Substance: BIAPENEM
     Indication: Evidence based treatment
     Dosage: UNK
     Route: 065
  17. TIGECYCLINE [Concomitant]
     Active Substance: TIGECYCLINE
     Indication: Evidence based treatment
     Dosage: UNK
     Route: 065

REACTIONS (1)
  - Drug ineffective [Unknown]
